FAERS Safety Report 25049415 (Version 1)
Quarter: 2025Q1

REPORT INFORMATION
  Report Type: Spontaneous
  Country: BF (occurrence: BF)
  Receive Date: 20250307
  Receipt Date: 20250307
  Transmission Date: 20250408
  Serious: Yes (Death, Other)
  Sender: BRISTOL-MYERS SQUIBB COMPANY
  Company Number: BF-BRISTOL-MYERS SQUIBB COMPANY-2025-032993

PATIENT
  Age: 40 Year
  Sex: Male

DRUGS (1)
  1. SPRYCEL [Suspect]
     Active Substance: DASATINIB
     Indication: Chronic myeloid leukaemia
     Dosage: 100MG (2 X 50MG TABLETS)

REACTIONS (1)
  - Death [Fatal]

NARRATIVE: CASE EVENT DATE: 20250219
